FAERS Safety Report 9816653 (Version 1)
Quarter: 2014Q1

REPORT INFORMATION
  Report Type: Spontaneous
  Country: None (occurrence: US)
  Receive Date: 20140114
  Receipt Date: 20140114
  Transmission Date: 20141002
  Serious: No
  Sender: FDA-Public Use
  Company Number: US-TEVA-455969USA

PATIENT
  Age: 32 Year
  Sex: Female
  Weight: 76.27 kg

DRUGS (2)
  1. PARAGARD 380A [Suspect]
     Indication: CONTRACEPTION
     Route: 015
     Dates: start: 20090506, end: 20140110
  2. SINGULAIR [Concomitant]
     Indication: ASTHMA

REACTIONS (1)
  - Medical device complication [Not Recovered/Not Resolved]
